FAERS Safety Report 7982613-3 (Version None)
Quarter: 2011Q4

REPORT INFORMATION
  Report Type: 
  Country: None (occurrence: None)
  Receive Date: 20111215
  Receipt Date: 20111208
  Transmission Date: 20120403
  Serious: Yes (Hospitalization)
  Sender: FDA-Public Use
  Company Number: DE-GLAXOSMITHKLINE-B0760237B

PATIENT
  Sex: Female
  Weight: 90 kg

DRUGS (5)
  1. TOPOTECAN [Suspect]
     Indication: CERVIX CARCINOMA
     Dosage: 1.75MGM2 CYCLIC
     Route: 042
     Dates: start: 20111004
  2. ENOXAPARIN SODIUM [Concomitant]
     Dosage: 60MG PER DAY
     Route: 058
  3. CITALOPRAM [Concomitant]
     Dosage: 20MG PER DAY
     Route: 048
  4. PANTOPRAZOLE SODIUM [Concomitant]
     Dosage: 40MG TWICE PER DAY
     Route: 048
  5. PACLITAXEL [Suspect]
     Indication: CERVIX CARCINOMA
     Dosage: 70MGM2 CYCLIC
     Route: 042
     Dates: start: 20111004

REACTIONS (3)
  - GENERAL PHYSICAL HEALTH DETERIORATION [None]
  - DIARRHOEA [None]
  - WEIGHT DECREASED [None]
